FAERS Safety Report 8125168-5 (Version None)
Quarter: 2012Q1

REPORT INFORMATION
  Report Type: 
  Country: None (occurrence: None)
  Receive Date: 20120209
  Receipt Date: 20120201
  Transmission Date: 20120608
  Serious: Yes (Hospitalization, Other)
  Sender: FDA-Public Use
  Company Number: US-BAYER-2011-054904

PATIENT
  Age: 37 Year
  Sex: Female
  Weight: 136 kg

DRUGS (13)
  1. MULTI-VITAMIN [Concomitant]
     Dosage: UNK
     Route: 048
     Dates: start: 19950101
  2. YASMIN [Suspect]
     Indication: PREMENSTRUAL SYNDROME
     Dosage: UNK
     Dates: start: 20040101, end: 20101201
  3. LEVOTHYROXINE SODIUM [Concomitant]
     Indication: HYPOTHYROIDISM
     Dosage: 125 ?G, UNK
     Route: 048
     Dates: start: 20010101
  4. SYNTHROID [Concomitant]
  5. ADVAIR DISKUS 100/50 [Concomitant]
     Indication: ASTHMA
     Dosage: 250/50
     Dates: start: 20030101
  6. HYOSCYAMINE [Concomitant]
     Dosage: UNK
     Dates: start: 20070701
  7. FLONASE [Concomitant]
     Indication: MULTIPLE ALLERGIES
     Dosage: UNK
     Dates: start: 19950101
  8. SINGULAIR [Concomitant]
     Indication: MULTIPLE ALLERGIES
     Dosage: UNK
     Route: 048
     Dates: start: 20040101
  9. LEXAPRO [Concomitant]
     Dosage: 20 MG, UNK
     Route: 048
  10. SINGULAIR [Concomitant]
     Indication: ASTHMA
  11. DROSPIRENONE AND ETHINYL ESTRADIOL [Suspect]
     Indication: PREMENSTRUAL SYNDROME
     Dosage: UNK
     Dates: start: 20040101, end: 20101201
  12. ALBUTEROL [Concomitant]
     Indication: ASTHMA
     Dosage: UNK
     Dates: start: 19930101
  13. ASCORBIC ACID [Concomitant]
     Dosage: UNK
     Route: 048
     Dates: start: 19950101

REACTIONS (17)
  - GALLBLADDER CHOLESTEROLOSIS [None]
  - INJURY [None]
  - FEAR [None]
  - GALLBLADDER DISORDER [None]
  - PULMONARY EMBOLISM [None]
  - MYOCARDIAL INFARCTION [None]
  - ANXIETY [None]
  - CHOLELITHIASIS [None]
  - DEEP VEIN THROMBOSIS [None]
  - PAIN [None]
  - AFFECTIVE DISORDER [None]
  - BILE DUCT STONE [None]
  - CEREBROVASCULAR ACCIDENT [None]
  - MENTAL DISORDER [None]
  - CHOLECYSTITIS CHRONIC [None]
  - DEPRESSION [None]
  - ANHEDONIA [None]
